FAERS Safety Report 21008353 (Version 4)
Quarter: 2022Q4

REPORT INFORMATION
  Report Type: Report from Study
  Country: US (occurrence: None)
  Receive Date: 20220627
  Receipt Date: 20221021
  Transmission Date: 20230113
  Serious: Yes (Hospitalization)
  Sender: FDA-Public Use
  Company Number: US-ROCHE-3123033

PATIENT
  Age: 73 Year
  Sex: Male
  Weight: 80.1 kg

DRUGS (32)
  1. RITUXIMAB [Suspect]
     Active Substance: RITUXIMAB
     Indication: Follicular lymphoma
     Dosage: DATE OF LAST DOSE PRIOR TO EVENT: 14/APR/2022
     Route: 042
     Dates: start: 20211223, end: 20220113
  2. RITUXIMAB [Suspect]
     Active Substance: RITUXIMAB
     Route: 042
     Dates: start: 20220120, end: 20220414
  3. EPCORITAMAB [Suspect]
     Active Substance: EPCORITAMAB
     Indication: Follicular lymphoma
     Dosage: PRIMING DOSE
     Route: 058
     Dates: start: 20211223, end: 20211223
  4. EPCORITAMAB [Suspect]
     Active Substance: EPCORITAMAB
     Dosage: INTERMEDIATE DOSE
     Route: 058
     Dates: start: 20211230, end: 20211230
  5. EPCORITAMAB [Suspect]
     Active Substance: EPCORITAMAB
     Dosage: FULL DOSE
     Route: 058
     Dates: start: 20220106, end: 20220210
  6. EPCORITAMAB [Suspect]
     Active Substance: EPCORITAMAB
     Dosage: FULL DOSE
     Route: 058
     Dates: start: 20220217, end: 20220512
  7. EPCORITAMAB [Suspect]
     Active Substance: EPCORITAMAB
     Dosage: FULL DOSE
     Route: 058
     Dates: start: 20220616
  8. LENALIDOMIDE [Suspect]
     Active Substance: LENALIDOMIDE
     Indication: Follicular lymphoma
     Route: 048
     Dates: start: 20211223, end: 20220109
  9. LENALIDOMIDE [Suspect]
     Active Substance: LENALIDOMIDE
     Route: 048
     Dates: start: 20220120, end: 20220209
  10. LENALIDOMIDE [Suspect]
     Active Substance: LENALIDOMIDE
     Route: 048
     Dates: start: 20220217, end: 20220309
  11. LENALIDOMIDE [Suspect]
     Active Substance: LENALIDOMIDE
     Route: 048
     Dates: start: 20220317, end: 20220406
  12. LENALIDOMIDE [Suspect]
     Active Substance: LENALIDOMIDE
     Route: 048
     Dates: start: 20220414, end: 20220504
  13. LENALIDOMIDE [Suspect]
     Active Substance: LENALIDOMIDE
     Route: 048
     Dates: start: 20220512, end: 20220531
  14. LENALIDOMIDE [Suspect]
     Active Substance: LENALIDOMIDE
     Route: 048
     Dates: start: 20220616
  15. COMBIGAN [Concomitant]
     Active Substance: BRIMONIDINE TARTRATE\TIMOLOL MALEATE
  16. DIGOXIN [Concomitant]
     Active Substance: DIGOXIN
  17. ENTRESTO [Concomitant]
     Active Substance: SACUBITRIL\VALSARTAN
  18. EPLERENONE [Concomitant]
     Active Substance: EPLERENONE
  19. FINASTERIDE [Concomitant]
     Active Substance: FINASTERIDE
  20. LIPITOR [Concomitant]
     Active Substance: ATORVASTATIN CALCIUM
  21. LUMIGAN [Concomitant]
     Active Substance: BIMATOPROST
  22. MYRBETRIQ [Concomitant]
     Active Substance: MIRABEGRON
  23. OXYCODONE [Concomitant]
     Active Substance: OXYCODONE
  24. PANTOPRAZOLE [Concomitant]
     Active Substance: PANTOPRAZOLE
  25. SENNOSIDES A AND B [Concomitant]
     Active Substance: SENNOSIDES A AND B
  26. TRAVOPROST [Concomitant]
     Active Substance: TRAVOPROST
  27. TYLENOL [Concomitant]
     Active Substance: ACETAMINOPHEN
  28. PREDNISONE [Concomitant]
     Active Substance: PREDNISONE
  29. ACYCLOVIR [Concomitant]
     Active Substance: ACYCLOVIR
  30. APIXABAN [Concomitant]
     Active Substance: APIXABAN
  31. BRIMONIDINE [Concomitant]
     Active Substance: BRIMONIDINE TARTRATE
  32. CARVEDILOL [Concomitant]
     Active Substance: CARVEDILOL

REACTIONS (2)
  - Electrocardiogram T wave abnormal [Recovered/Resolved]
  - Electrocardiogram T wave inversion [Recovered/Resolved]

NARRATIVE: CASE EVENT DATE: 20220609
